FAERS Safety Report 6567954-9 (Version None)
Quarter: 2010Q1

REPORT INFORMATION
  Report Type: 
  Country: None (occurrence: None)
  Receive Date: 20100203
  Receipt Date: 20090521
  Transmission Date: 20100710
  Serious: Yes (Death)
  Sender: FDA-Public Use
  Company Number: PHEH2009US18897

PATIENT

DRUGS (1)
  1. EXJADE [Suspect]
     Dosage: 1500 MG
     Route: 048

REACTIONS (1)
  - DEATH [None]
